FAERS Safety Report 9000157 (Version 1)
Quarter: 2013Q1

REPORT INFORMATION
  Report Type: Report from Study
  Country: CA (occurrence: CA)
  Receive Date: 20130102
  Receipt Date: 20130102
  Transmission Date: 20140127
  Serious: Yes (Hospitalization)
  Sender: FDA-Public Use
  Company Number: CA-JNJFOC-20121213514

PATIENT
  Age: 52 Year
  Sex: Male
  Weight: 66 kg

DRUGS (15)
  1. REMICADE [Suspect]
     Indication: ARTHRITIS ENTEROPATHIC
     Route: 042
     Dates: start: 20120207
  2. REMICADE [Suspect]
     Indication: ARTHRITIS ENTEROPATHIC
     Route: 042
     Dates: start: 20120404
  3. REMICADE [Suspect]
     Indication: ARTHRITIS ENTEROPATHIC
     Route: 042
     Dates: start: 20111213
  4. REMICADE [Suspect]
     Indication: ARTHRITIS ENTEROPATHIC
     Route: 042
     Dates: start: 20060815
  5. REMICADE [Suspect]
     Indication: CROHN^S DISEASE
     Route: 042
     Dates: start: 20060815
  6. REMICADE [Suspect]
     Indication: CROHN^S DISEASE
     Route: 042
     Dates: start: 20120404
  7. REMICADE [Suspect]
     Indication: CROHN^S DISEASE
     Route: 042
     Dates: start: 20120207
  8. REMICADE [Suspect]
     Indication: CROHN^S DISEASE
     Route: 042
     Dates: start: 20111213
  9. LOSEC [Concomitant]
     Indication: GASTROINTESTINAL DISORDER THERAPY
     Route: 048
  10. METHOTREXATE [Concomitant]
     Indication: ARTHRITIS ENTEROPATHIC
     Route: 058
     Dates: end: 20111103
  11. VITAMIN B12 [Concomitant]
     Indication: ROUTINE HEALTH MAINTENANCE
     Route: 048
     Dates: end: 20111103
  12. IMMODIUM [Concomitant]
     Indication: GASTROINTESTINAL DISORDER THERAPY
     Route: 048
  13. IRON [Concomitant]
     Indication: ROUTINE HEALTH MAINTENANCE
     Route: 048
  14. DOXAZOSIN [Concomitant]
     Indication: HYPERTENSION
     Route: 048
  15. FOLIC ACID [Concomitant]
     Indication: ARTHRITIS ENTEROPATHIC
     Route: 048
     Dates: end: 20111103

REACTIONS (2)
  - Intestinal resection [Recovered/Resolved]
  - Device related sepsis [Recovered/Resolved]
